FAERS Safety Report 5254274-8 (Version None)
Quarter: 2007Q1

REPORT INFORMATION
  Report Type: 
  Country: None (occurrence: None)
  Receive Date: 20070302
  Receipt Date: 20070216
  Transmission Date: 20070707
  Serious: Yes (Death)
  Sender: FDA-Public Use
  Company Number: CIM003/07

PATIENT
  Age: 77 Year
  Sex: Female
  Weight: 67 kg

DRUGS (9)
  1. CIMETIDINE HCL [Suspect]
     Indication: DYSPEPSIA
     Dosage: 400MG AT NIGHT
     Route: 048
     Dates: start: 19870101, end: 20030201
  2. SOLPADOL [Concomitant]
     Dosage: 2CAP FOUR TIMES PER DAY
     Route: 048
     Dates: start: 20050701, end: 20060901
  3. CO-PROXAMOL [Concomitant]
     Route: 048
     Dates: start: 19960101, end: 20060101
  4. LOPERAMIDE HCL [Concomitant]
     Route: 048
     Dates: start: 20020101, end: 20060901
  5. LANSOPRAZOLE [Concomitant]
     Dates: start: 20050101, end: 20060901
  6. CALCICHEW D3 [Concomitant]
     Dates: start: 19980101, end: 20060101
  7. ACETAMINOPHEN W/ CODEINE [Concomitant]
     Dates: start: 19960101, end: 20060101
  8. DIDRONEL PMO [Concomitant]
     Dates: start: 20040101, end: 20060101
  9. ALENDRONIC ACID [Concomitant]

REACTIONS (3)
  - CHEST X-RAY ABNORMAL [None]
  - DEATH [None]
  - PULMONARY FIBROSIS [None]
